FAERS Safety Report 10158985 (Version 1)
Quarter: 2014Q2

REPORT INFORMATION
  Report Type: Spontaneous
  Country: US (occurrence: US)
  Receive Date: 20140508
  Receipt Date: 20140508
  Transmission Date: 20141212
  Serious: No
  Sender: FDA-Public Use
  Company Number: US-BIOGENIDEC-2014BI039991

PATIENT
  Sex: Female

DRUGS (20)
  1. TECFIDERA [Suspect]
     Indication: MULTIPLE SCLEROSIS
     Route: 048
  2. RESTASIS [Concomitant]
  3. GEODON [Concomitant]
  4. FOLIC ACID [Concomitant]
  5. GEMFIBROZIL [Concomitant]
  6. ASPIRIN [Concomitant]
  7. PRILOSEC [Concomitant]
  8. ALPRAZOLAM [Concomitant]
  9. PROMETHAZINE [Concomitant]
  10. TRIAMCINOLON [Concomitant]
  11. CLONAZEPAM [Concomitant]
  12. TRAZODONE [Concomitant]
  13. OXYCODONE [Concomitant]
  14. LEXAPRO [Concomitant]
  15. COUMADIN [Concomitant]
  16. COUMADIN [Concomitant]
  17. ALBUTEROL [Concomitant]
  18. NEURONTIN [Concomitant]
  19. ADVAIR [Concomitant]
  20. SIMVASTATIN [Concomitant]

REACTIONS (1)
  - Alopecia [Not Recovered/Not Resolved]
